FAERS Safety Report 9319972 (Version 1)
Quarter: 2013Q2

REPORT INFORMATION
  Report Type: Report from Study
  Country: BR (occurrence: BR)
  Receive Date: 20130530
  Receipt Date: 20130530
  Transmission Date: 20140414
  Serious: Yes (Other)
  Sender: FDA-Public Use
  Company Number: PHHY2013BR054728

PATIENT
  Age: 61 Year
  Sex: Male

DRUGS (3)
  1. DIOVAN [Suspect]
     Indication: HYPERTENSION
     Dosage: 2 DF(320MG), DAILY
     Route: 048
  2. RIVOTRIL [Suspect]
     Dosage: UNK UKN, UNK
  3. VASTAREL [Suspect]
     Dosage: UNK UKN, UNK

REACTIONS (3)
  - Sensory loss [Unknown]
  - Scratch [Recovering/Resolving]
  - Road traffic accident [Unknown]
